APPROVED DRUG PRODUCT: IRINOTECAN HYDROCHLORIDE
Active Ingredient: IRINOTECAN HYDROCHLORIDE
Strength: 500MG/25ML (20MG/ML)
Dosage Form/Route: INJECTABLE;INJECTION
Application: A078796 | Product #001 | TE Code: AP
Applicant: HOSPIRA INC
Approved: Feb 27, 2008 | RLD: No | RS: Yes | Type: RX